FAERS Safety Report 7111588-4 (Version None)
Quarter: 2010Q4

REPORT INFORMATION
  Report Type: 
  Country: None (occurrence: None)
  Receive Date: 20101118
  Receipt Date: 20100304
  Transmission Date: 20110411
  Serious: No
  Sender: FDA-Public Use
  Company Number: US-TEVA-222895USA

PATIENT
  Sex: Female
  Weight: 106.69 kg

DRUGS (4)
  1. ALBUTEROL SULFATE AUTOHALER [Suspect]
     Dosage: 2 PUFFS PRN, ONLY USED A FEW TIMES PER YEAR
     Route: 055
     Dates: start: 20090101, end: 20100101
  2. LOTREL [Concomitant]
  3. FLUOXETINE HYDROCHLORIDE [Concomitant]
  4. FEXOFENADINE [Concomitant]

REACTIONS (1)
  - SYNCOPE [None]
